FAERS Safety Report 8142203-9 (Version None)
Quarter: 2012Q1

REPORT INFORMATION
  Report Type: 
  Country: None (occurrence: None)
  Receive Date: 20120216
  Receipt Date: 20120203
  Transmission Date: 20120608
  Serious: Yes (Other)
  Sender: FDA-Public Use
  Company Number: US-ROCHE-1037284

PATIENT
  Sex: Female

DRUGS (4)
  1. NEURONTIN [Concomitant]
     Route: 065
     Dates: start: 20100618
  2. PEGINTERFERON ALFA-2A [Suspect]
     Indication: HEPATITIS C
     Route: 058
     Dates: start: 20100609, end: 20100908
  3. NORTRIPTYLINE HCL [Concomitant]
     Route: 065
     Dates: start: 20100518
  4. COPEGUS [Suspect]
     Indication: HEPATITIS C
     Route: 048
     Dates: start: 20100609, end: 20100908

REACTIONS (1)
  - BENIGN INTRACRANIAL HYPERTENSION [None]
